FAERS Safety Report 17262558 (Version 4)
Quarter: 2021Q1

REPORT INFORMATION
  Report Type: Spontaneous
  Country: US (occurrence: US)
  Receive Date: 20200113
  Receipt Date: 20210106
  Transmission Date: 20210419
  Serious: Yes (Hospitalization)
  Sender: FDA-Public Use
  Company Number: US-PFIZER INC-2020011852

PATIENT
  Age: 75 Year
  Sex: Female

DRUGS (1)
  1. XELJANZ XR [Suspect]
     Active Substance: TOFACITINIB CITRATE
     Indication: RHEUMATOID ARTHRITIS
     Dosage: 11 MG, 1X/DAY
     Route: 048
     Dates: start: 201806, end: 2020

REACTIONS (8)
  - Arthralgia [Unknown]
  - Pain in extremity [Unknown]
  - Peripheral coldness [Unknown]
  - Nasopharyngitis [Unknown]
  - Back pain [Unknown]
  - Muscle spasms [Unknown]
  - Product dose omission issue [Unknown]
  - Cerebrovascular accident [Unknown]

NARRATIVE: CASE EVENT DATE: 201912
